FAERS Safety Report 6014690-3 (Version None)
Quarter: 2008Q4

REPORT INFORMATION
  Report Type: 
  Country: None (occurrence: None)
  Receive Date: 20081219
  Receipt Date: 20081212
  Transmission Date: 20090506
  Serious: Yes (Other)
  Sender: FDA-Public Use
  Company Number: FR-ELI_LILLY_AND_COMPANY-FR200810005446

PATIENT
  Age: 87 Year
  Sex: Female
  Weight: 87 kg

DRUGS (6)
  1. FORTEO [Suspect]
     Indication: OSTEOPOROSIS
     Dosage: 20 UG, DAILY (1/D)
     Route: 058
     Dates: start: 20071120, end: 20081022
  2. LASIX [Concomitant]
     Dosage: 40 MG, UNKNOWN
     Route: 065
  3. KARDEGIC [Concomitant]
     Dosage: 75 MG, UNKNOWN
     Route: 065
  4. AMLOD [Concomitant]
     Dosage: UNK, UNKNOWN
     Route: 065
  5. DETENSIEL [Concomitant]
     Dosage: UNK, UNKNOWN
     Route: 065
  6. CEFTAZIDIME [Concomitant]
     Dosage: UNK, UNKNOWN
     Route: 065

REACTIONS (1)
  - RENAL FAILURE [None]
